FAERS Safety Report 8397827 (Version 3)
Quarter: 2013Q3

REPORT INFORMATION
  Report Type: Report from Study
  Country: DE (occurrence: DE)
  Receive Date: 20120209
  Receipt Date: 20130816
  Transmission Date: 20140515
  Serious: Yes (Other)
  Sender: FDA-Public Use
  Company Number: DE-ROCHE-1037999

PATIENT
  Sex: 0

DRUGS (3)
  1. ALTEPLASE [Suspect]
     Indication: AGE-RELATED MACULAR DEGENERATION
     Dosage: SUBRETINAL INJECTION OF 10-20 MCG DISSOLVED IN 0.05-0.1 ML BALANCED SALT SOLUTION
     Route: 050
  2. BEVACIZUMAB [Suspect]
     Indication: AGE-RELATED MACULAR DEGENERATION
     Dosage: SUBRETINAL INJECTION DISSOLVED IN 0.05 ML BSS
     Route: 050
  3. SULFUR HEXAFLUORIDE [Suspect]
     Indication: AGE-RELATED MACULAR DEGENERATION
     Route: 065

REACTIONS (1)
  - Retinal detachment [Unknown]
